FAERS Safety Report 4460010-5 (Version None)
Quarter: 2004Q3

REPORT INFORMATION
  Report Type: 
  Country: None (occurrence: None)
  Receive Date: 20040928
  Receipt Date: 20030924
  Transmission Date: 20050211
  Serious: No
  Sender: FDA-Public Use
  Company Number: US-GLAXOSMITHKLINE-A0427360A

PATIENT
  Age: 37 Year
  Sex: Female

DRUGS (4)
  1. SEREVENT [Suspect]
     Indication: ASTHMA
     Dosage: 4 PER DAY
     Route: 055
     Dates: start: 20030922
  2. SINGULAIR [Concomitant]
  3. ALBUTEROL [Concomitant]
  4. PRENATAL VITAMIN [Concomitant]

REACTIONS (1)
  - DRUG EXPOSURE DURING PREGNANCY [None]
